FAERS Safety Report 23789510 (Version 2)
Quarter: 2024Q2

REPORT INFORMATION
  Report Type: Spontaneous
  Country: GB (occurrence: GB)
  Receive Date: 20240426
  Receipt Date: 20240614
  Transmission Date: 20240715
  Serious: Yes (Other)
  Sender: FDA-Public Use
  Company Number: GB-GLAXOSMITHKLINE-GB2024EME053275

PATIENT

DRUGS (1)
  1. MOMELOTINIB [Suspect]
     Active Substance: MOMELOTINIB
     Indication: Product used for unknown indication
     Dosage: 200 MG, QD

REACTIONS (2)
  - Squamous cell carcinoma [Unknown]
  - Heavy exposure to ultraviolet light [Unknown]
